FAERS Safety Report 9187957 (Version 1)
Quarter: 2013Q1

REPORT INFORMATION
  Report Type: Spontaneous
  Country: IT (occurrence: IT)
  Receive Date: 20130325
  Receipt Date: 20130325
  Transmission Date: 20140127
  Serious: Yes (Hospitalization)
  Sender: FDA-Public Use
  Company Number: IT-MYLANLABS-2013S1005804

PATIENT
  Age: 49 Year
  Sex: Male

DRUGS (2)
  1. LORAZEPAM [Suspect]
     Indication: DEPRESSION
     Route: 048
     Dates: start: 20130115, end: 20130115
  2. ZOLPIDEM [Suspect]
     Indication: DEPRESSION
     Route: 048
     Dates: start: 20130115, end: 20130115

REACTIONS (3)
  - Drug abuse [Recovered/Resolved]
  - Movement disorder [Recovered/Resolved]
  - Overdose [Recovered/Resolved]
